FAERS Safety Report 6263034-0 (Version None)
Quarter: 2009Q3

REPORT INFORMATION
  Report Type: 
  Country: None (occurrence: None)
  Receive Date: 20090708
  Receipt Date: 20090708
  Transmission Date: 20100115
  Serious: Yes (Other)
  Sender: FDA-Public Use
  Company Number: None

PATIENT
  Age: 72 Year
  Sex: Female
  Weight: 57.1532 kg

DRUGS (2)
  1. LYRICA [Suspect]
     Indication: NEURALGIA
     Dosage: 75 MG 50 MG AT FIRST 1 CAPSULE TWICE DAILY
     Dates: start: 20081211
  2. LYRICA [Suspect]

REACTIONS (3)
  - DRY MOUTH [None]
  - MUSCLE SPASMS [None]
  - MUSCULAR WEAKNESS [None]
